FAERS Safety Report 15605575 (Version 1)
Quarter: 2018Q4

REPORT INFORMATION
  Report Type: Spontaneous
  Country: DE (occurrence: DE)
  Receive Date: 20181112
  Receipt Date: 20181112
  Transmission Date: 20190205
  Serious: Yes (Hospitalization)
  Sender: FDA-Public Use
  Company Number: DE-BIOGEN-132332

PATIENT
  Age: 35 Year
  Sex: Female

DRUGS (3)
  1. LANTAREL [Concomitant]
     Active Substance: METHOTREXATE SODIUM
     Indication: MULTIPLE SCLEROSIS
     Route: 065
     Dates: start: 19990706, end: 19990804
  2. AVONEX [Suspect]
     Active Substance: INTERFERON BETA-1A
     Indication: MULTIPLE SCLEROSIS
     Route: 030
     Dates: start: 19980105
  3. URBASON [Concomitant]
     Active Substance: METHYLPREDNISOLONE
     Indication: MULTIPLE SCLEROSIS
     Dosage: UNKNOWN
     Route: 042
     Dates: start: 19990706, end: 19990709

REACTIONS (1)
  - Injection site abscess [Recovered/Resolved]

NARRATIVE: CASE EVENT DATE: 199907
